FAERS Safety Report 7374945-7 (Version None)
Quarter: 2011Q1

REPORT INFORMATION
  Report Type: 
  Country: None (occurrence: None)
  Receive Date: 20110325
  Receipt Date: 20110311
  Transmission Date: 20110831
  Serious: Yes (Hospitalization)
  Sender: FDA-Public Use
  Company Number: PHHY2011BE20138

PATIENT
  Sex: Female
  Weight: 65 kg

DRUGS (7)
  1. COVERSYL [Concomitant]
     Indication: HYPERTENSION
     Dosage: 5 MG, DAILY
  2. TEMESTA [Concomitant]
     Indication: INSOMNIA
     Dosage: 1 MG, DAILY
  3. PANTOPRAZOLE [Concomitant]
     Indication: GASTRIC DISORDER
     Dosage: 40 MG, DAILY
  4. EMCONCOR [Concomitant]
     Indication: HYPERTENSION
     Dosage: 7.5 MG, UNK
  5. CAFERGOT [Suspect]
     Indication: MIGRAINE
     Dosage: 0.25 MG, DAILY
     Dates: start: 19450101, end: 20100101
  6. CAFERGOT [Suspect]
     Indication: NAUSEA
  7. CITALOPRAM HYDROBROMIDE [Concomitant]
     Indication: DEPRESSION
     Dosage: 10 MG, DAILY

REACTIONS (4)
  - DYSPNOEA [None]
  - PLEUROPERICARDITIS [None]
  - PLEURAL EFFUSION [None]
  - PYREXIA [None]
